FAERS Safety Report 7998373-6 (Version None)
Quarter: 2011Q4

REPORT INFORMATION
  Report Type: 
  Country: None (occurrence: None)
  Receive Date: 20111207
  Receipt Date: 20111130
  Transmission Date: 20120403
  Serious: Yes (Life-Threatening, Hospitalization, Other)
  Sender: FDA-Public Use
  Company Number: 2011029883

PATIENT
  Sex: Male
  Weight: 78.4723 kg

DRUGS (19)
  1. PREDNISONE TAB [Concomitant]
  2. PROAIR (PROCATEROL HYDROCHLORIDE) [Concomitant]
  3. LIPITOR [Concomitant]
  4. VITAMIN D [Concomitant]
  5. DILTIAZEM CD (DILTIAZEM HYDROCHLORIDE) [Concomitant]
  6. ALBUTEROL [Concomitant]
  7. AVELOX [Concomitant]
  8. SINGULAIR [Concomitant]
  9. HIZENTRA [Suspect]
  10. PROVERA [Concomitant]
  11. HIZENTRA [Suspect]
     Indication: IMMUNODEFICIENCY COMMON VARIABLE
     Dosage: (10 G 1X/WEEK, 2 GM 10 ML VIAL; 50 ML WEEKLY IN 3 SITES OVER 1-2 HOURS SUBCUTANEOUS), (4 GM 20 ML SU
     Route: 058
     Dates: start: 20110421, end: 20111027
  12. HIZENTRA [Suspect]
     Indication: ASTHMA
     Dosage: (10 G 1X/WEEK, 2 GM 10 ML VIAL; 50 ML WEEKLY IN 3 SITES OVER 1-2 HOURS SUBCUTANEOUS), (4 GM 20 ML SU
     Route: 058
     Dates: start: 20110421, end: 20111027
  13. FLONASE [Concomitant]
  14. DIOVAN [Concomitant]
  15. METFORMIN HCL [Concomitant]
  16. DUONEB [Concomitant]
  17. ZYRTEC [Concomitant]
  18. AXIRON (TESTOSTERONE) [Concomitant]
  19. ADVAIR DISKUS 100/50 [Concomitant]

REACTIONS (5)
  - ASTHMA [None]
  - ELECTROCARDIOGRAM ST-T CHANGE [None]
  - SINUSITIS [None]
  - CONDITION AGGRAVATED [None]
  - CHRONIC OBSTRUCTIVE PULMONARY DISEASE [None]
